FAERS Safety Report 24828956 (Version 1)
Quarter: 2025Q1

REPORT INFORMATION
  Report Type: Spontaneous
  Country: CN (occurrence: CN)
  Receive Date: 20250110
  Receipt Date: 20250110
  Transmission Date: 20250408
  Serious: Yes (Other)
  Sender: BEIGENE
  Company Number: CN-BEIGENE-BGN-2025-000154

PATIENT

DRUGS (37)
  1. TISLELIZUMAB [Suspect]
     Active Substance: TISLELIZUMAB
     Indication: Lung neoplasm malignant
     Route: 041
     Dates: start: 20231024
  2. TISLELIZUMAB [Suspect]
     Active Substance: TISLELIZUMAB
     Indication: Squamous cell carcinoma
     Route: 041
     Dates: start: 20231114
  3. TISLELIZUMAB [Suspect]
     Active Substance: TISLELIZUMAB
     Route: 041
     Dates: start: 20231207
  4. TISLELIZUMAB [Suspect]
     Active Substance: TISLELIZUMAB
     Route: 041
     Dates: start: 20231228
  5. TISLELIZUMAB [Suspect]
     Active Substance: TISLELIZUMAB
     Route: 041
     Dates: start: 20240118
  6. TISLELIZUMAB [Suspect]
     Active Substance: TISLELIZUMAB
     Route: 041
     Dates: start: 20240208
  7. TISLELIZUMAB [Suspect]
     Active Substance: TISLELIZUMAB
     Route: 041
     Dates: start: 20240311
  8. TISLELIZUMAB [Suspect]
     Active Substance: TISLELIZUMAB
     Route: 041
     Dates: start: 20240411
  9. TISLELIZUMAB [Suspect]
     Active Substance: TISLELIZUMAB
     Route: 041
     Dates: start: 20240511
  10. TISLELIZUMAB [Suspect]
     Active Substance: TISLELIZUMAB
     Route: 041
     Dates: start: 20240611
  11. TISLELIZUMAB [Suspect]
     Active Substance: TISLELIZUMAB
     Route: 041
     Dates: start: 20240706
  12. TISLELIZUMAB [Suspect]
     Active Substance: TISLELIZUMAB
     Route: 041
     Dates: start: 20240727
  13. TISLELIZUMAB [Suspect]
     Active Substance: TISLELIZUMAB
     Route: 041
     Dates: start: 20240822
  14. TISLELIZUMAB [Suspect]
     Active Substance: TISLELIZUMAB
     Route: 041
     Dates: start: 20240914
  15. TISLELIZUMAB [Suspect]
     Active Substance: TISLELIZUMAB
     Route: 041
     Dates: start: 20241010
  16. TISLELIZUMAB [Suspect]
     Active Substance: TISLELIZUMAB
     Route: 041
     Dates: start: 20241204
  17. TISLELIZUMAB [Suspect]
     Active Substance: TISLELIZUMAB
     Route: 041
     Dates: start: 20241224
  18. CATEQUENTINIB DIHYDROCHLORIDE [Concomitant]
     Active Substance: CATEQUENTINIB DIHYDROCHLORIDE
     Indication: Lung neoplasm malignant
     Route: 048
     Dates: start: 20241204
  19. CATEQUENTINIB DIHYDROCHLORIDE [Concomitant]
     Active Substance: CATEQUENTINIB DIHYDROCHLORIDE
     Indication: Squamous cell carcinoma
     Dosage: 12 MILLIGRAM, QD
     Route: 048
     Dates: start: 20241225, end: 20250103
  20. PACLITAXEL [Concomitant]
     Active Substance: PACLITAXEL
     Indication: Lung neoplasm malignant
     Dates: start: 20231024
  21. PACLITAXEL [Concomitant]
     Active Substance: PACLITAXEL
     Indication: Squamous cell carcinoma
     Dates: start: 20231114
  22. PACLITAXEL [Concomitant]
     Active Substance: PACLITAXEL
     Dates: start: 20231207
  23. PACLITAXEL [Concomitant]
     Active Substance: PACLITAXEL
     Dates: start: 20231228
  24. PACLITAXEL [Concomitant]
     Active Substance: PACLITAXEL
     Dates: start: 20240118
  25. PACLITAXEL [Concomitant]
     Active Substance: PACLITAXEL
     Dates: start: 20240208
  26. CARBOPLATIN [Concomitant]
     Active Substance: CARBOPLATIN
     Indication: Lung neoplasm malignant
     Dates: start: 20231024
  27. CARBOPLATIN [Concomitant]
     Active Substance: CARBOPLATIN
     Indication: Squamous cell carcinoma
     Dates: start: 20231114
  28. CARBOPLATIN [Concomitant]
     Active Substance: CARBOPLATIN
     Dates: start: 20231207
  29. CARBOPLATIN [Concomitant]
     Active Substance: CARBOPLATIN
     Dates: start: 20231228
  30. CARBOPLATIN [Concomitant]
     Active Substance: CARBOPLATIN
     Dates: start: 20240118
  31. CARBOPLATIN [Concomitant]
     Active Substance: CARBOPLATIN
     Dates: start: 20240208
  32. DOCETAXEL [Concomitant]
     Active Substance: DOCETAXEL
     Indication: Lung neoplasm malignant
     Dates: start: 20240614
  33. DOCETAXEL [Concomitant]
     Active Substance: DOCETAXEL
     Indication: Squamous cell carcinoma
     Dates: start: 20240706
  34. DOCETAXEL [Concomitant]
     Active Substance: DOCETAXEL
     Dates: start: 20240727
  35. DOCETAXEL [Concomitant]
     Active Substance: DOCETAXEL
     Dates: start: 20240822
  36. DOCETAXEL [Concomitant]
     Active Substance: DOCETAXEL
     Dates: start: 20240914
  37. DOCETAXEL [Concomitant]
     Active Substance: DOCETAXEL
     Dates: start: 20241010

REACTIONS (5)
  - Disease progression [Unknown]
  - Pneumonia [Unknown]
  - White blood cell count decreased [Unknown]
  - Rash [Unknown]
  - Pruritus [Unknown]

NARRATIVE: CASE EVENT DATE: 20240601
